FAERS Safety Report 5479445-7 (Version None)
Quarter: 2007Q4

REPORT INFORMATION
  Report Type: 
  Country: None (occurrence: None)
  Receive Date: 20071008
  Receipt Date: 20070926
  Transmission Date: 20080405
  Serious: Yes (Other)
  Sender: FDA-Public Use
  Company Number: US-WYE-H00414507

PATIENT
  Sex: Female

DRUGS (2)
  1. EFFEXOR XR [Suspect]
     Dosage: 37.5 MG FREQUENCY UNKNOWN
     Route: 048
     Dates: end: 20070901
  2. EFFEXOR XR [Suspect]
     Dosage: ^TITRATED COMPLETELY OFF EFFEXOR XR^
     Route: 048
     Dates: start: 20070901, end: 20070901

REACTIONS (7)
  - DIARRHOEA [None]
  - DIZZINESS [None]
  - DRUG WITHDRAWAL SYNDROME [None]
  - FATIGUE [None]
  - NAUSEA [None]
  - PARAESTHESIA [None]
  - SUICIDAL IDEATION [None]
